FAERS Safety Report 22084606 (Version 1)
Quarter: 2023Q1

REPORT INFORMATION
  Report Type: Spontaneous
  Country: US (occurrence: US)
  Receive Date: 20230310
  Receipt Date: 20230310
  Transmission Date: 20230417
  Serious: No
  Sender: FDA-Public Use
  Company Number: US-PFIZER INC-202300097269

PATIENT
  Age: 68 Year
  Sex: Female

DRUGS (1)
  1. IBRANCE [Suspect]
     Active Substance: PALBOCICLIB
     Dosage: TAKE 1 TABLET DAILY FOR 21 DAYS ON FOLLOWED BY 7 DAYS OFF
     Dates: start: 20230123, end: 2023

REACTIONS (3)
  - White blood cell count decreased [Unknown]
  - Musculoskeletal stiffness [Unknown]
  - Pain [Unknown]
